FAERS Safety Report 19857014 (Version 2)
Quarter: 2021Q4

REPORT INFORMATION
  Report Type: Report from Study
  Country: US (occurrence: US)
  Receive Date: 20210920
  Receipt Date: 20211103
  Transmission Date: 20220303
  Serious: Yes (Hospitalization, Other)
  Sender: FDA-Public Use
  Company Number: US-EXELIXIS-CABO-21043683

PATIENT
  Age: 62 Year
  Sex: Male

DRUGS (2)
  1. CABOMETYX [Suspect]
     Active Substance: CABOZANTINIB S-MALATE
     Indication: Renal cancer
     Dosage: 40 MG, QD
     Route: 048
     Dates: start: 20210818, end: 20210914
  2. CABOMETYX [Suspect]
     Active Substance: CABOZANTINIB S-MALATE
     Dosage: 40 MG, QD
     Route: 048
     Dates: start: 20210915

REACTIONS (10)
  - Chest pain [Unknown]
  - Diarrhoea [Unknown]
  - Weight decreased [Unknown]
  - Tenderness [Unknown]
  - Ageusia [Unknown]
  - Constipation [Recovered/Resolved]
  - Blood pressure increased [Recovered/Resolved]
  - Stomatitis [Unknown]
  - Fatigue [Unknown]
  - Hypotension [Unknown]

NARRATIVE: CASE EVENT DATE: 20210819
